FAERS Safety Report 5802031-3 (Version None)
Quarter: 2008Q3

REPORT INFORMATION
  Report Type: 
  Country: None (occurrence: None)
  Receive Date: 20080707
  Receipt Date: 20080626
  Transmission Date: 20090109
  Serious: Yes (Other)
  Sender: FDA-Public Use
  Company Number: JP-PFIZER INC-2008052585

PATIENT
  Age: 39 Year
  Sex: Female

DRUGS (2)
  1. DIFLUCAN [Suspect]
     Indication: DECUBITUS ULCER
     Route: 048
  2. DRUG, UNSPECIFIED [Concomitant]

REACTIONS (1)
  - DEAFNESS [None]
